FAERS Safety Report 8454734-2 (Version None)
Quarter: 2012Q2

REPORT INFORMATION
  Report Type: 
  Country: None (occurrence: None)
  Receive Date: 20120614
  Receipt Date: 20120516
  Transmission Date: 20120825
  Serious: Yes (Hospitalization, Other)
  Sender: FDA-Public Use
  Company Number: 2012AM006446

PATIENT
  Age: 70 Year
  Sex: Male
  Weight: 107.9561 kg

DRUGS (23)
  1. ALBUTEROL [Concomitant]
  2. LANTUS [Concomitant]
  3. PREDNISONE TAB [Concomitant]
  4. METOPROLOL TARTRATE [Concomitant]
  5. ALBUTEROL SULFATE [Concomitant]
  6. SPIRIVA [Concomitant]
  7. FAMOTIDINE [Concomitant]
  8. TRIAMCINOLONE ACETAONE [Concomitant]
  9. ROSUVASTATIN [Concomitant]
  10. NOVOLOG [Concomitant]
  11. ROPINIROLE [Concomitant]
  12. HYDROCODONE BITARTRATE AND ACETAMINOPHEN [Concomitant]
  13. CLOBETASOL PROPIONATE [Concomitant]
  14. ASPIRIN [Concomitant]
  15. FUROSEMIDE [Concomitant]
  16. SYMLIN [Suspect]
     Indication: DIABETES MELLITUS
     Dosage: 120 MCG; ; SC;
     Route: 058
     Dates: start: 20120511
  17. SYMLIN [Suspect]
     Indication: DIABETES MELLITUS
     Dosage: 120 MCG; ; SC;
     Route: 058
     Dates: end: 20120511
  18. PLAVIX [Concomitant]
  19. METOLAZONE [Concomitant]
  20. SINGULAIR [Concomitant]
  21. HALOBETASOL PROPIONATE [Concomitant]
  22. ADVAIR DISKUS 100/50 [Concomitant]
  23. SALACYLIC ACID [Concomitant]

REACTIONS (4)
  - CONDITION AGGRAVATED [None]
  - CARDIAC FAILURE CONGESTIVE [None]
  - DRUG DOSE OMISSION [None]
  - BLOOD GLUCOSE INCREASED [None]
